FAERS Safety Report 8562058-8 (Version None)
Quarter: 2012Q3

REPORT INFORMATION
  Report Type: 
  Country: None (occurrence: None)
  Receive Date: 20120802
  Receipt Date: 20120703
  Transmission Date: 20120928
  Serious: No
  Sender: FDA-Public Use
  Company Number: US-AMGEN-USASP2012041232

PATIENT
  Age: 51 Year
  Sex: Male

DRUGS (1)
  1. ENBREL [Suspect]
     Indication: RHEUMATOID ARTHRITIS
     Dosage: 50 MG, QWK
     Dates: start: 20070601

REACTIONS (9)
  - INJECTION SITE HAEMORRHAGE [None]
  - PRODUCTIVE COUGH [None]
  - BURNING SENSATION [None]
  - SINUSITIS [None]
  - INJECTION SITE PAIN [None]
  - INJECTION SITE REACTION [None]
  - INJECTION SITE PRURITUS [None]
  - RESPIRATORY TRACT CONGESTION [None]
  - INJECTION SITE ERYTHEMA [None]
